FAERS Safety Report 9372078 (Version 1)
Quarter: 2013Q2

REPORT INFORMATION
  Report Type: Report from Study
  Country: US (occurrence: US)
  Receive Date: 20130627
  Receipt Date: 20130627
  Transmission Date: 20140414
  Serious: Yes (Death)
  Sender: FDA-Public Use
  Company Number: US-MYLANLABS-2012S1014329

PATIENT
  Age: 47 Year
  Sex: Male
  Weight: 105.24 kg

DRUGS (1)
  1. CLOZAPINE TABLETS [Suspect]
     Indication: SCHIZOPHRENIA
     Dosage: 100MG QAM, 300MG HS
     Route: 048
     Dates: start: 2006, end: 2012

REACTIONS (1)
  - Death [Fatal]
